FAERS Safety Report 11213382 (Version 1)
Quarter: 2015Q2

REPORT INFORMATION
  Report Type: Spontaneous
  Country: US (occurrence: US)
  Receive Date: 20150623
  Receipt Date: 20150623
  Transmission Date: 20150821
  Serious: No
  Sender: FDA-Public Use
  Company Number: US-MEDA-2015050024

PATIENT
  Sex: Male

DRUGS (2)
  1. VITAMIN E [Concomitant]
     Active Substance: .ALPHA.-TOCOPHEROL
     Indication: PENILE CURVATURE
  2. MUSE [Suspect]
     Active Substance: ALPROSTADIL
     Route: 066

REACTIONS (2)
  - Genital discomfort [Unknown]
  - Contraindicated drug administered [Unknown]
